FAERS Safety Report 7948808-X (Version None)
Quarter: 2011Q4

REPORT INFORMATION
  Report Type: 
  Country: None (occurrence: None)
  Receive Date: 20111130
  Receipt Date: 20111118
  Transmission Date: 20120403
  Serious: Yes (Other)
  Sender: FDA-Public Use
  Company Number: JP-PFIZER INC-2011284803

PATIENT
  Age: 56 Year
  Sex: Male

DRUGS (9)
  1. CYTARABINE [Suspect]
     Indication: ACUTE MYELOID LEUKAEMIA
     Dosage: 100 MG/M2, UNK
     Route: 041
  2. CYTARABINE [Suspect]
     Dosage: 100 MG/M2, UNK
     Route: 041
  3. MYLOTARG [Suspect]
     Indication: ACUTE MYELOID LEUKAEMIA
     Dosage: 3 MG/M2, UNK
     Route: 042
  4. MYLOTARG [Suspect]
     Dosage: 3 MG/M2, UNK
     Route: 042
  5. MYLOTARG [Suspect]
     Dosage: 5 MG/M2, UNK
     Route: 042
  6. CYTARABINE [Suspect]
     Dosage: 100 MG/M2, UNK
     Route: 041
  7. IDAMYCIN [Suspect]
     Dosage: 12 MG/M2, 1X/DAY
     Route: 042
  8. IDAMYCIN [Suspect]
     Dosage: 12 MG/M2, 1X/DAY
     Route: 042
  9. IDAMYCIN [Suspect]
     Indication: ACUTE MYELOID LEUKAEMIA
     Dosage: 10 MG/M2, 1X/DAY
     Route: 042

REACTIONS (6)
  - NEUTROPENIA [None]
  - HAEMOGLOBIN DECREASED [None]
  - THROMBOCYTOPENIA [None]
  - LEUKOPENIA [None]
  - SEPSIS [None]
  - BRAIN ABSCESS [None]
